FAERS Safety Report 15274832 (Version 1)
Quarter: 2018Q3

REPORT INFORMATION
  Report Type: Spontaneous
  Country: US (occurrence: US)
  Receive Date: 20180727
  Receipt Date: 20180727
  Transmission Date: 20181010
  Serious: No
  Sender: FDA-Public Use
  Company Number: None

PATIENT
  Age: 27 Year
  Sex: Female
  Weight: 68.95 kg

DRUGS (1)
  1. SUBOXONE [Suspect]
     Active Substance: BUPRENORPHINE HYDROCHLORIDE\NALOXONE HYDROCHLORIDE
     Indication: DRUG DEPENDENCE
     Dosage: 8?2M  2.5 DAILY ORAL/SUBLINGUAL??CAME FROM ANOTHER CLINIC
     Route: 048

REACTIONS (3)
  - Pruritus generalised [None]
  - Urticaria [None]
  - Hypoaesthesia oral [None]
